FAERS Safety Report 18423622 (Version 2)
Quarter: 2020Q4

REPORT INFORMATION
  Report Type: Spontaneous
  Country: NO (occurrence: NO)
  Receive Date: 20201024
  Receipt Date: 20201202
  Transmission Date: 20210114
  Serious: Yes (Other)
  Sender: FDA-Public Use
  Company Number: NO-AMGEN-NORSP2020171630

PATIENT
  Sex: Female

DRUGS (1)
  1. AIMOVIG [Suspect]
     Active Substance: ERENUMAB-AOOE
     Indication: MIGRAINE
     Dosage: 140 MG
     Route: 051
     Dates: start: 20200312, end: 2020

REACTIONS (7)
  - Snoring [Unknown]
  - Dyspnoea [Unknown]
  - Hypersensitivity [Unknown]
  - Anxiety [Unknown]
  - Chest pain [Unknown]
  - Pharyngeal oedema [Unknown]
  - Laryngeal oedema [Unknown]

NARRATIVE: CASE EVENT DATE: 2020
